FAERS Safety Report 13762601 (Version 3)
Quarter: 2017Q4

REPORT INFORMATION
  Report Type: Spontaneous
  Country: US (occurrence: US)
  Receive Date: 20170718
  Receipt Date: 20171102
  Transmission Date: 20180320
  Serious: Yes (Other)
  Sender: FDA-Public Use
  Company Number: US-PFIZER INC-2017311359

PATIENT
  Age: 80 Year
  Sex: Female

DRUGS (1)
  1. XELJANZ XR [Suspect]
     Active Substance: TOFACITINIB CITRATE
     Indication: RHEUMATOID ARTHRITIS
     Dosage: 11 MG, 2X/DAY
     Dates: start: 201607

REACTIONS (9)
  - Fall [Unknown]
  - Swelling [Unknown]
  - Drug ineffective [Unknown]
  - Peripheral swelling [Unknown]
  - Joint swelling [Unknown]
  - Hip fracture [Unknown]
  - Gait disturbance [Unknown]
  - Product use issue [Unknown]
  - Fluid retention [Unknown]

NARRATIVE: CASE EVENT DATE: 201607
